FAERS Safety Report 8595333-1 (Version None)
Quarter: 2012Q3

REPORT INFORMATION
  Report Type: 
  Country: None (occurrence: None)
  Receive Date: 20120815
  Receipt Date: 20120813
  Transmission Date: 20120928
  Serious: Yes (Other)
  Sender: FDA-Public Use
  Company Number: PHEH2012US015834

PATIENT
  Sex: Male

DRUGS (1)
  1. ZOMETA [Suspect]
     Indication: PROSTATIC DISORDER
     Dosage: UNK, EVERY 4 WEEKS
     Route: 042
     Dates: start: 20110816

REACTIONS (2)
  - NEPHROLITHIASIS [None]
  - PAIN [None]
